FAERS Safety Report 13746089 (Version 2)
Quarter: 2017Q3

REPORT INFORMATION
  Report Type: Spontaneous
  Country: US (occurrence: US)
  Receive Date: 20170712
  Receipt Date: 20170824
  Transmission Date: 20171127
  Serious: Yes (Hospitalization, Other)
  Sender: FDA-Public Use
  Company Number: US-UNIQUE PHARMACEUTICAL LABORATORIES-2017RIS00146

PATIENT
  Age: 68 Year
  Sex: Female
  Weight: 63.49 kg

DRUGS (7)
  1. CALCIUM PLUS D [Concomitant]
     Active Substance: CALCIUM\VITAMIN D
     Dosage: 1 TABLETS, 1X/DAY
  2. UNSPECIFIED VITAMIN D [Concomitant]
  3. TYLENOL [Concomitant]
     Active Substance: ACETAMINOPHEN
     Dosage: 650 MG, AS NEEDED
  4. LOSARTAN. [Concomitant]
     Active Substance: LOSARTAN
     Indication: HYPERTENSION
     Dosage: 50 MG, 1X/DAY
  5. AMLODIPINE [Concomitant]
     Active Substance: AMLODIPINE BESYLATE
     Indication: HYPERTENSION
     Dosage: 5 MG, 1X/DAY
  6. DICLOFENAC SODIUM DELAYED-RELEASE TABLETS USP 75MG [Suspect]
     Active Substance: DICLOFENAC SODIUM
     Indication: BURSITIS
     Dosage: 75 MG, 2X/DAY
     Route: 048
     Dates: start: 20170426, end: 20170530
  7. HYDROCHLOROTHIAZIDE. [Concomitant]
     Active Substance: HYDROCHLOROTHIAZIDE
     Dosage: 12.5 MG, 1X/DAY
     Dates: end: 20170530

REACTIONS (20)
  - Ventricular extrasystoles [Unknown]
  - Nasal congestion [Unknown]
  - Dysphagia [Unknown]
  - Limb injury [Unknown]
  - Hemiparaesthesia [Unknown]
  - Dehydration [Unknown]
  - Tenosynovitis [Not Recovered/Not Resolved]
  - Constipation [Unknown]
  - Asthenia [Unknown]
  - Urinary retention [Recovered/Resolved]
  - Haemorrhagic stroke [Unknown]
  - Hypertension [Recovered/Resolved]
  - Tremor [Unknown]
  - Circulatory collapse [Unknown]
  - Scoliosis [Unknown]
  - Musculoskeletal pain [Unknown]
  - Headache [Unknown]
  - Gait disturbance [Unknown]
  - Nausea [Unknown]
  - Off label use [Recovered/Resolved]

NARRATIVE: CASE EVENT DATE: 2017
